FAERS Safety Report 25315903 (Version 1)
Quarter: 2025Q2

REPORT INFORMATION
  Report Type: Spontaneous
  Country: US (occurrence: US)
  Receive Date: 20250515
  Receipt Date: 20250515
  Transmission Date: 20250716
  Serious: No
  Sender: JOHNSON AND JOHNSON
  Company Number: US-JNJFOC-20250505855

PATIENT
  Sex: Female

DRUGS (1)
  1. RYBREVANT [Suspect]
     Active Substance: AMIVANTAMAB-VMJW
     Indication: Neoplasm malignant
     Route: 065

REACTIONS (5)
  - Product dose omission issue [Unknown]
  - Dermatitis allergic [Unknown]
  - Acne [Unknown]
  - Constipation [Unknown]
  - Cough [Unknown]
